FAERS Safety Report 8249204-0 (Version None)
Quarter: 2012Q1

REPORT INFORMATION
  Report Type: 
  Country: None (occurrence: None)
  Receive Date: 20120328
  Receipt Date: 20120313
  Transmission Date: 20120608
  Serious: Yes (Hospitalization)
  Sender: FDA-Public Use
  Company Number: UTC-016581

PATIENT
  Age: 50 Year
  Sex: Male

DRUGS (4)
  1. REMODULIN [Suspect]
     Indication: PULMONARY ARTERIAL HYPERTENSION
     Dosage: 60.48 UG/KG (0.042 UG/KG, 1 IN 1 MIN), SUBCUTANEOUS
     Route: 058
     Dates: start: 20110412
  2. TRACLEER [Concomitant]
  3. DIURETICS (DIURETICS) [Concomitant]
  4. COUMADIN [Concomitant]

REACTIONS (3)
  - MALAISE [None]
  - INFUSION SITE PAIN [None]
  - INFUSION SITE INFECTION [None]
